FAERS Safety Report 4907993-4 (Version None)
Quarter: 2006Q1

REPORT INFORMATION
  Report Type: 
  Country: None (occurrence: None)
  Receive Date: 20060210
  Receipt Date: 20060112
  Transmission Date: 20060701
  Serious: Yes (Other)
  Sender: FDA-Public Use
  Company Number: US-GLAXOSMITHKLINE-A0589057A

PATIENT
  Sex: Male

DRUGS (2)
  1. PAXIL CR [Suspect]
     Indication: DEPRESSION
     Dosage: 25MG PER DAY
     Route: 048
     Dates: start: 20040101, end: 20060108
  2. LOTREL [Concomitant]

REACTIONS (5)
  - ANGER [None]
  - CRYING [None]
  - FATIGUE [None]
  - SLEEP DISORDER [None]
  - SUICIDAL IDEATION [None]
